FAERS Safety Report 12817044 (Version 1)
Quarter: 2016Q4

REPORT INFORMATION
  Report Type: Spontaneous
  Country: GR (occurrence: GR)
  Receive Date: 20161006
  Receipt Date: 20161006
  Transmission Date: 20170207
  Serious: Yes (Other)
  Sender: FDA-Public Use
  Company Number: GR-BAXTER-2016BAX050883

PATIENT
  Sex: Female

DRUGS (11)
  1. FULVESTRANT [Suspect]
     Active Substance: FULVESTRANT
     Indication: METASTASES TO BONE
     Dosage: REGIMEN#1
     Route: 065
     Dates: start: 2012
  2. CALCIUM SUPPLEMENT [Concomitant]
     Active Substance: CALCIUM
     Indication: PRODUCT USED FOR UNKNOWN INDICATION
     Dosage: SUPPLEMENTATION
     Route: 065
  3. DENOSUMAB [Suspect]
     Active Substance: DENOSUMAB
     Indication: METASTASES TO BONE
     Dosage: REGIMEN#1
     Route: 065
     Dates: start: 2014
  4. CAPECITABINE. [Suspect]
     Active Substance: CAPECITABINE
     Indication: DISEASE PROGRESSION
     Dosage: REGIMEN#1
     Route: 065
     Dates: start: 201601
  5. TAXOTERE [Suspect]
     Active Substance: DOCETAXEL
     Indication: BREAST CANCER METASTATIC
     Dosage: SIX CYCLES OF CHEMOTHERAPY
     Route: 065
  6. TAMOXIFEN CITRATE. [Suspect]
     Active Substance: TAMOXIFEN CITRATE
     Indication: BREAST CANCER METASTATIC
     Route: 065
     Dates: start: 201211
  7. EVEROLIMUS [Suspect]
     Active Substance: EVEROLIMUS
     Indication: METASTASES TO BONE
     Dosage: REGIMEN#1
     Route: 065
     Dates: start: 201211
  8. ZOLEDRONIC ACID [Suspect]
     Active Substance: ZOLEDRONIC ACID
     Indication: METASTASES TO BONE
     Dosage: REGIMEN#1
     Route: 065
     Dates: start: 201211, end: 2014
  9. ENDOXAN 1000 MG - POWDER FOR SOLUTION FOR INJECTION [Suspect]
     Active Substance: CYCLOPHOSPHAMIDE
     Indication: BREAST CANCER METASTATIC
     Dosage: SIX CYCLES OF CHEMOTHERAPY
     Route: 065
  10. LETROZOLE. [Suspect]
     Active Substance: LETROZOLE
     Indication: BREAST CANCER METASTATIC
     Dosage: REGIMEN#1
     Route: 065
  11. EXEMESTANE. [Suspect]
     Active Substance: EXEMESTANE
     Indication: METASTASES TO BONE
     Route: 065
     Dates: start: 201211

REACTIONS (5)
  - Disease recurrence [Unknown]
  - Osteoporosis [Unknown]
  - Malignant neoplasm progression [Unknown]
  - Osteonecrosis of jaw [Unknown]
  - Metastases to bone [Unknown]
